FAERS Safety Report 5797209-1 (Version None)
Quarter: 2008Q3

REPORT INFORMATION
  Report Type: 
  Country: None (occurrence: None)
  Receive Date: 20080701
  Receipt Date: 20080618
  Transmission Date: 20090109
  Serious: Yes (Other)
  Sender: FDA-Public Use
  Company Number: GB-PFIZER INC-2008007054

PATIENT
  Sex: Female

DRUGS (4)
  1. NICOTINE [Suspect]
     Indication: SMOKING CESSATION THERAPY
     Dosage: TEXT:2-3 CARTRIDGES DAILY
     Route: 055
     Dates: start: 20080109, end: 20080601
  2. ZOLPIDEM [Concomitant]
     Indication: SLEEP DISORDER
  3. VALIUM [Concomitant]
     Indication: SLEEP DISORDER
     Dates: start: 20040101
  4. TEGRETOL [Concomitant]
     Indication: EPILEPSY
     Dates: start: 20040101

REACTIONS (4)
  - DIZZINESS [None]
  - HEAD INJURY [None]
  - OVERDOSE [None]
  - SYNCOPE [None]
